FAERS Safety Report 5399387-5 (Version None)
Quarter: 2007Q3

REPORT INFORMATION
  Report Type: 
  Country: None (occurrence: None)
  Receive Date: 20070727
  Receipt Date: 20070717
  Transmission Date: 20080115
  Serious: Yes (Hospitalization)
  Sender: FDA-Public Use
  Company Number: US-JNJFOC-20070704831

PATIENT
  Sex: Female
  Weight: 147.42 kg

DRUGS (7)
  1. ORTHO EVRA [Suspect]
     Indication: CONTRACEPTION
     Route: 062
  2. PREDNISONE [Concomitant]
     Indication: DRUG USE FOR UNKNOWN INDICATION
  3. AMOXICILLIN [Concomitant]
     Indication: DRUG USE FOR UNKNOWN INDICATION
  4. VICODIN [Concomitant]
     Indication: DRUG USE FOR UNKNOWN INDICATION
  5. KLONOPIN [Concomitant]
     Indication: DRUG USE FOR UNKNOWN INDICATION
  6. DEPAKOTE [Concomitant]
     Indication: DRUG USE FOR UNKNOWN INDICATION
  7. LEXAPRO [Concomitant]
     Indication: DRUG USE FOR UNKNOWN INDICATION

REACTIONS (2)
  - CORONARY ARTERY DISEASE [None]
  - MYOCARDIAL INFARCTION [None]
